FAERS Safety Report 6375179-5 (Version None)
Quarter: 2009Q3

REPORT INFORMATION
  Report Type: 
  Country: None (occurrence: None)
  Receive Date: 20090924
  Receipt Date: 20090917
  Transmission Date: 20100115
  Serious: Yes (Life-Threatening)
  Sender: FDA-Public Use
  Company Number: JP-ASTRAZENECA-2009SE14406

PATIENT
  Age: 21283 Day
  Sex: Male
  Weight: 51 kg

DRUGS (6)
  1. BLOPRESS [Suspect]
     Indication: HYPERTENSION
     Route: 048
     Dates: start: 20090702, end: 20090706
  2. VOLTAREN SUPPO [Concomitant]
     Route: 054
     Dates: start: 20090628, end: 20090718
  3. MYSLEE [Concomitant]
     Route: 048
     Dates: start: 20090628, end: 20090803
  4. URSO 250 [Concomitant]
     Route: 048
     Dates: start: 20090702, end: 20090706
  5. PURSENNID [Concomitant]
     Route: 048
     Dates: start: 20090630
  6. LOXONIN [Concomitant]
     Route: 048
     Dates: start: 20090628, end: 20090703

REACTIONS (2)
  - LARYNGEAL OEDEMA [None]
  - OROPHARYNGEAL PAIN [None]
